FAERS Safety Report 5300882-5 (Version None)
Quarter: 2007Q2

REPORT INFORMATION
  Report Type: 
  Country: None (occurrence: None)
  Receive Date: 20070418
  Receipt Date: 20070412
  Transmission Date: 20071010
  Serious: Yes (Hospitalization)
  Sender: FDA-Public Use
  Company Number: FR-BRISTOL-MYERS SQUIBB COMPANY-13750419

PATIENT
  Age: 64 Year
  Sex: Male

DRUGS (4)
  1. GLUCOPHAGE [Suspect]
     Indication: DIABETES MELLITUS NON-INSULIN-DEPENDENT
  2. LESCOL [Concomitant]
  3. COKENZEN [Concomitant]
  4. CANDESARTAN [Concomitant]

REACTIONS (1)
  - INTERSTITIAL LUNG DISEASE [None]
